FAERS Safety Report 25671691 (Version 1)
Quarter: 2025Q3

REPORT INFORMATION
  Report Type: Spontaneous
  Country: EU (occurrence: EU)
  Receive Date: 20250812
  Receipt Date: 20250812
  Transmission Date: 20251020
  Serious: Yes (Death, Other)
  Sender: BRISTOL-MYERS SQUIBB COMPANY
  Company Number: EU-CELGENE-GRC-20190605491

PATIENT
  Age: 35 Year
  Sex: Male

DRUGS (3)
  1. POMALIDOMIDE [Suspect]
     Active Substance: POMALIDOMIDE
     Indication: Plasmacytoma
     Route: 048
  2. POMALIDOMIDE [Suspect]
     Active Substance: POMALIDOMIDE
     Indication: Plasma cell myeloma
  3. MELPHALAN [Concomitant]
     Active Substance: MELPHALAN
     Indication: Plasmacytoma
     Route: 042

REACTIONS (2)
  - Infection [Fatal]
  - Multiple organ dysfunction syndrome [Fatal]
